FAERS Safety Report 6158772-4 (Version None)
Quarter: 2009Q2

REPORT INFORMATION
  Report Type: 
  Country: None (occurrence: None)
  Receive Date: 20090417
  Receipt Date: 20090408
  Transmission Date: 20091009
  Serious: Yes (Life-Threatening, Hospitalization)
  Sender: FDA-Public Use
  Company Number: B0570084A

PATIENT
  Sex: Female
  Weight: 89.6 kg

DRUGS (7)
  1. TOPOTECAN [Suspect]
     Indication: SMALL CELL LUNG CANCER EXTENSIVE STAGE
     Dosage: 2.94MG PER DAY
     Dates: start: 20090309
  2. ATENOLOL [Concomitant]
     Dosage: 50MG PER DAY
     Dates: start: 19980101
  3. GLIMEPIRIDE [Concomitant]
     Dosage: 1MG PER DAY
     Dates: start: 19980101
  4. KALURIL [Concomitant]
     Indication: HYPERTENSION
     Dosage: 50MG PER DAY
     Dates: start: 19980101
  5. DIAFORMIN [Concomitant]
     Dosage: 1000MG PER DAY
     Route: 048
     Dates: start: 20080101
  6. OROXINE [Concomitant]
     Dosage: 50MG PER DAY
     Route: 048
     Dates: start: 20090101
  7. PEGFILGRASTIM [Concomitant]
     Indication: PROPHYLAXIS
     Dosage: 6MG PER DAY
     Route: 058
     Dates: start: 20090315, end: 20090315

REACTIONS (5)
  - ABDOMINAL DISTENSION [None]
  - ANAEMIA [None]
  - FEBRILE NEUTROPENIA [None]
  - LARGE INTESTINE PERFORATION [None]
  - THROMBOCYTOPENIA [None]
